FAERS Safety Report 19483893 (Version 2)
Quarter: 2021Q3

REPORT INFORMATION
  Report Type: Spontaneous
  Country: SK (occurrence: SK)
  Receive Date: 20210701
  Receipt Date: 20210908
  Transmission Date: 20211014
  Serious: Yes (Death, Life-Threatening, Hospitalization)
  Sender: FDA-Public Use
  Company Number: SK-TEVA-2021-SK-1927795

PATIENT
  Age: 33 Year
  Sex: Female

DRUGS (1)
  1. FLUCONAZOLE. [Suspect]
     Active Substance: FLUCONAZOLE
     Route: 065

REACTIONS (5)
  - Transaminases increased [Fatal]
  - C-reactive protein increased [Fatal]
  - Cholestasis [Fatal]
  - Drug-induced liver injury [Fatal]
  - Blood bilirubin increased [Fatal]
